FAERS Safety Report 18606954 (Version 1)
Quarter: 2020Q4

REPORT INFORMATION
  Report Type: Spontaneous
  Country: US (occurrence: US)
  Receive Date: 20201211
  Receipt Date: 20201211
  Transmission Date: 20210114
  Serious: No
  Sender: FDA-Public Use
  Company Number: US-KALA PHARAMACEUTICALS-2020KLA00037

PATIENT
  Age: 79 Year
  Sex: Female

DRUGS (10)
  1. LATANOPROST. [Concomitant]
     Active Substance: LATANOPROST
  2. ATENOLOL. [Concomitant]
     Active Substance: ATENOLOL
  3. METHAZOLAMIDE. [Concomitant]
     Active Substance: METHAZOLAMIDE
  4. BRIMONIDINE [Concomitant]
     Active Substance: BRIMONIDINE TARTRATE
  5. INVELTYS [Suspect]
     Active Substance: LOTEPREDNOL ETABONATE
     Indication: EYE INFLAMMATION
     Dosage: 1 DROP, 2X/DAY IN THE LEFT EYE
     Route: 047
     Dates: start: 20200916, end: 20200922
  6. MURO 128 [Concomitant]
     Active Substance: SODIUM CHLORIDE
  7. VALSARTAN. [Concomitant]
     Active Substance: VALSARTAN
  8. SYNTHROID [Concomitant]
     Active Substance: LEVOTHYROXINE SODIUM
  9. BESIVANCE [Concomitant]
     Active Substance: BESIFLOXACIN
  10. COMBIGAN [Concomitant]
     Active Substance: BRIMONIDINE TARTRATE\TIMOLOL MALEATE

REACTIONS (1)
  - Intraocular pressure increased [Recovering/Resolving]

NARRATIVE: CASE EVENT DATE: 202009
